FAERS Safety Report 16029410 (Version 1)
Quarter: 2019Q2

REPORT INFORMATION
  Report Type: Spontaneous
  Country: US (occurrence: US)
  Receive Date: 20190303
  Receipt Date: 20190303
  Transmission Date: 20190711
  Serious: Yes (Life-Threatening, Hospitalization, Disabling, Other)
  Sender: FDA-Public Use
  Company Number: None

PATIENT
  Age: 47 Year
  Sex: Female
  Weight: 76.5 kg

DRUGS (4)
  1. CIPRO [Suspect]
     Active Substance: CIPROFLOXACIN HYDROCHLORIDE
     Indication: SINUSITIS
     Dosage: ?          QUANTITY:1 CAPSULE(S);?
     Route: 048
  2. CIPRO [Suspect]
     Active Substance: CIPROFLOXACIN HYDROCHLORIDE
     Indication: URINARY TRACT INFECTION
     Dosage: ?          QUANTITY:1 CAPSULE(S);?
     Route: 048
  3. CALM MAGNESIUM [Concomitant]
  4. SYMBION PROBIOTICS [Concomitant]

REACTIONS (5)
  - Rheumatoid arthritis [None]
  - Irritable bowel syndrome [None]
  - Antiphospholipid syndrome [None]
  - Plasma cell mastitis [None]
  - Fibromyalgia [None]

NARRATIVE: CASE EVENT DATE: 20030902
